FAERS Safety Report 10229837 (Version 8)
Quarter: 2015Q2

REPORT INFORMATION
  Report Type: Report from Study
  Country: IT (occurrence: IT)
  Receive Date: 20140611
  Receipt Date: 20150518
  Transmission Date: 20150821
  Serious: Yes (Hospitalization)
  Sender: FDA-Public Use
  Company Number: IT-ROCHE-1411921

PATIENT
  Age: 58 Year
  Sex: Male
  Weight: 77 kg

DRUGS (10)
  1. OBINUTUZUMAB [Suspect]
     Active Substance: OBINUTUZUMAB
     Dosage: CYCLE 1 DAY 15
     Route: 042
     Dates: start: 20140703, end: 20140703
  2. BENDAMUSTINE [Suspect]
     Active Substance: BENDAMUSTINE
     Route: 042
     Dates: start: 20140716
  3. TRIATEC (ITALY) [Concomitant]
     Active Substance: RAMIPRIL
     Indication: HYPERTENSION
     Route: 048
     Dates: start: 20110919
  4. OBINUTUZUMAB [Suspect]
     Active Substance: OBINUTUZUMAB
     Dosage: CYCLE 1 DAY 8
     Route: 042
     Dates: start: 20140624, end: 20140624
  5. EUTIROX [Concomitant]
     Active Substance: LEVOTHYROXINE SODIUM
     Indication: THYROID NEOPLASM
     Route: 048
     Dates: start: 20081004
  6. BENDAMUSTINE [Suspect]
     Active Substance: BENDAMUSTINE
     Indication: CHRONIC LYMPHOCYTIC LEUKAEMIA
     Dosage: DATE OF LAST DOSE PRIOR TO SAE WAS 22/MAY/2014.
     Route: 042
     Dates: start: 20140521, end: 20140522
  7. OBINUTUZUMAB [Suspect]
     Active Substance: OBINUTUZUMAB
     Indication: CHRONIC LYMPHOCYTIC LEUKAEMIA
     Dosage: FREQUENCY AS PER PROTOCOL : DAYS 1/2 IN SPLITED DOSE, 8 AND 15 OF CYCLE 1, AND ON DAY 1 OF CYCLES 2
     Route: 042
     Dates: start: 20140521, end: 20140522
  8. NORVASC [Concomitant]
     Active Substance: AMLODIPINE BESYLATE
     Indication: HYPERTENSION
     Route: 048
     Dates: start: 200909
  9. EUTIROX [Concomitant]
     Active Substance: LEVOTHYROXINE SODIUM
     Route: 048
     Dates: start: 200803
  10. PROCAPTAN [Concomitant]
     Active Substance: PERINDOPRIL ERBUMINE
     Indication: HYPERTENSION
     Route: 048
     Dates: start: 201001, end: 20140529

REACTIONS (1)
  - Clostridium colitis [Recovered/Resolved]

NARRATIVE: CASE EVENT DATE: 20140527
